FAERS Safety Report 9225677 (Version 10)
Quarter: 2017Q1

REPORT INFORMATION
  Report Type: Spontaneous
  Country: US (occurrence: US)
  Receive Date: 20130411
  Receipt Date: 20170306
  Transmission Date: 20170429
  Serious: Yes (Hospitalization, Other)
  Sender: FDA-Public Use
  Company Number: US-GLAXOSMITHKLINE-A1019646A

PATIENT
  Age: 55 Year
  Sex: Female
  Weight: 77.3 kg

DRUGS (13)
  1. FLOLAN [Suspect]
     Active Substance: EPOPROSTENOL SODIUM
     Dosage: UNK
     Dates: start: 20090410
  2. FLOLAN [Suspect]
     Active Substance: EPOPROSTENOL SODIUM
     Dosage: 37 NG/KG/MIN
     Dates: start: 20090409
  3. FLOLAN [Suspect]
     Active Substance: EPOPROSTENOL SODIUM
     Dosage: 38 DF, UNK
  4. FLOLAN [Suspect]
     Active Substance: EPOPROSTENOL SODIUM
     Dosage: 37 NG/KG/MIN CONTINUOUSLY
  5. FLOLAN [Suspect]
     Active Substance: EPOPROSTENOL SODIUM
     Indication: PULMONARY ARTERIAL HYPERTENSION
     Route: 042
  6. WARFARIN [Concomitant]
     Active Substance: WARFARIN
  7. FLOLAN [Suspect]
     Active Substance: EPOPROSTENOL SODIUM
     Dosage: 38 NG/KG/MIN CONTINUOUSLY
     Route: 042
  8. REVATIO [Concomitant]
     Active Substance: SILDENAFIL CITRATE
  9. FLOLAN [Suspect]
     Active Substance: EPOPROSTENOL SODIUM
     Dosage: 38 NG/KG/MIN CONTINUOUS
     Route: 042
  10. COUMADIN [Suspect]
     Active Substance: WARFARIN SODIUM
     Indication: PRODUCT USED FOR UNKNOWN INDICATION
  11. FLOLAN [Suspect]
     Active Substance: EPOPROSTENOL SODIUM
     Indication: PULMONARY ARTERIAL HYPERTENSION
     Dosage: 37 NG/KG/MIN, CONC: 45,000 NG/ML, PUMP RATE 82 ML/DAY, VIAL STRENGTH 1.5 MG
     Route: 042
     Dates: start: 20090409
  12. FLOLAN [Suspect]
     Active Substance: EPOPROSTENOL SODIUM
     Dosage: 38 NG/KG/MIN CONTINUOUSLY
     Route: 042
  13. FLOLAN [Suspect]
     Active Substance: EPOPROSTENOL SODIUM
     Dosage: 39 NG/KG/MIN CONTINUOUS
     Route: 042

REACTIONS (15)
  - Oral surgery [Recovered/Resolved]
  - Diarrhoea [Unknown]
  - Back pain [Unknown]
  - Device leakage [Recovered/Resolved]
  - Pain in jaw [Unknown]
  - Headache [Unknown]
  - Epistaxis [Unknown]
  - Back injury [Unknown]
  - Dental operation [Unknown]
  - Open fracture [Unknown]
  - Pneumonia [Recovered/Resolved]
  - Pain in extremity [Unknown]
  - Spinal fracture [Unknown]
  - Nasopharyngitis [Not Recovered/Not Resolved]
  - Rash [Unknown]

NARRATIVE: CASE EVENT DATE: 201505
